FAERS Safety Report 7392217-1 (Version None)
Quarter: 2011Q2

REPORT INFORMATION
  Report Type: 
  Country: None (occurrence: None)
  Receive Date: 20110404
  Receipt Date: 20110328
  Transmission Date: 20111010
  Serious: Yes (Other)
  Sender: FDA-Public Use
  Company Number: Z0004468A

PATIENT
  Sex: Male
  Weight: 78.6 kg

DRUGS (2)
  1. OFATUMUMAB [Suspect]
     Route: 042
     Dates: start: 20100527
  2. CHLORAMBUCIL [Suspect]
     Route: 048
     Dates: start: 20100527

REACTIONS (1)
  - MYOCLONUS [None]
